FAERS Safety Report 13601775 (Version 1)
Quarter: 2017Q2

REPORT INFORMATION
  Report Type: Spontaneous
  Country: US (occurrence: US)
  Receive Date: 20170601
  Receipt Date: 20170601
  Transmission Date: 20170830
  Serious: No
  Sender: FDA-Public Use
  Company Number: US-BAUSCH-BL-2016-018260

PATIENT
  Age: 69 Year
  Sex: Male

DRUGS (3)
  1. ELIDEL [Suspect]
     Active Substance: PIMECROLIMUS
     Indication: FUNGAL INFECTION
     Dosage: 6-8 TIMES DAILY
     Route: 061
     Dates: start: 20160726
  2. PROBIOTICS [Concomitant]
     Active Substance: PROBIOTICS NOS
     Indication: FUNGAL INFECTION
     Route: 048
  3. GOLD BOND ORIGINAL STRENGTH POWDER [Concomitant]
     Active Substance: MENTHOL\ZINC OXIDE
     Indication: FUNGAL INFECTION
     Dosage: AS NEEDED
     Route: 061
     Dates: start: 20160727

REACTIONS (2)
  - Therapeutic response unexpected [Recovering/Resolving]
  - Off label use [Unknown]

NARRATIVE: CASE EVENT DATE: 20160726
